FAERS Safety Report 7426295-8 (Version None)
Quarter: 2011Q2

REPORT INFORMATION
  Report Type: 
  Country: None (occurrence: None)
  Receive Date: 20110420
  Receipt Date: 20110413
  Transmission Date: 20111010
  Serious: Yes (Other)
  Sender: FDA-Public Use
  Company Number: A0922871A

PATIENT
  Age: 40 Year
  Sex: Female

DRUGS (2)
  1. CONCURRENT MEDICATIONS [Concomitant]
  2. FLOVENT [Suspect]
     Indication: ASTHMA
     Dosage: 110MCG SINGLE DOSE
     Route: 055
     Dates: start: 20110407, end: 20110407

REACTIONS (5)
  - CONJUNCTIVITIS [None]
  - URTICARIA [None]
  - ANAPHYLACTIC REACTION [None]
  - COUGH [None]
  - RHINORRHOEA [None]
